FAERS Safety Report 8530952-X (Version None)
Quarter: 2012Q3

REPORT INFORMATION
  Report Type: 
  Country: None (occurrence: None)
  Receive Date: 20120723
  Receipt Date: 20120713
  Transmission Date: 20120928
  Serious: Yes (Death, Hospitalization)
  Sender: FDA-Public Use
  Company Number: DE-ROCHE-1090493

PATIENT
  Sex: Female
  Weight: 60 kg

DRUGS (4)
  1. ZOFRAN [Concomitant]
     Route: 042
     Dates: start: 20120213
  2. RANITIDINE [Concomitant]
     Route: 042
     Dates: start: 20120213
  3. AVASTIN [Suspect]
     Indication: COLON CANCER
     Route: 042
     Dates: start: 20120213
  4. DEXAMETHASONE SODIUM PHOSPHATE [Concomitant]
     Route: 042
     Dates: start: 20120213

REACTIONS (3)
  - VENOUS THROMBOSIS LIMB [None]
  - NEOPLASM MALIGNANT [None]
  - ILEUS [None]
